FAERS Safety Report 5869764-4 (Version None)
Quarter: 2008Q3

REPORT INFORMATION
  Report Type: 
  Country: None (occurrence: None)
  Receive Date: 20080904
  Receipt Date: 20080826
  Transmission Date: 20090109
  Serious: Yes (Other)
  Sender: FDA-Public Use
  Company Number: DE-TEVA-176545ISR

PATIENT
  Sex: Female

DRUGS (11)
  1. MELOXICAM [Suspect]
     Indication: INTERVERTEBRAL DISC PROTRUSION
     Route: 048
     Dates: start: 20070122, end: 20070205
  2. DIPYRONE TAB [Suspect]
     Indication: PAIN
     Route: 048
     Dates: start: 20070205, end: 20070510
  3. DIPYRONE TAB [Suspect]
     Route: 048
     Dates: start: 20070511, end: 20070525
  4. LEVOTHYROXINE SODIUM [Concomitant]
     Indication: HYPOTHYROIDISM
     Route: 048
     Dates: start: 19960701, end: 20071027
  5. AMITRIPTYLINE HCL [Concomitant]
     Indication: SLEEP DISORDER
     Dates: start: 20030101
  6. BISOPROLOL FUMARATE [Concomitant]
     Dosage: 5MG/12.5MG
     Route: 048
     Dates: start: 20060301, end: 20070709
  7. ASPIRIN PLUS C [Concomitant]
     Indication: BONE PAIN
     Route: 048
     Dates: start: 19600101, end: 20071026
  8. WET COMOD [Concomitant]
     Route: 047
     Dates: start: 20060801
  9. TIRGON [Concomitant]
     Indication: CONSTIPATION
     Route: 048
     Dates: start: 19970101
  10. CALCIUM [Concomitant]
     Indication: OSTEOPOROSIS
     Route: 048
     Dates: start: 19700101
  11. MAGNESIUM SULFATE [Concomitant]
     Route: 048
     Dates: start: 19700101

REACTIONS (1)
  - AUTOIMMUNE THROMBOCYTOPENIA [None]
